FAERS Safety Report 11457883 (Version 3)
Quarter: 2015Q4

REPORT INFORMATION
  Report Type: Report from Study
  Country: KR (occurrence: KR)
  Receive Date: 20150904
  Receipt Date: 20151014
  Transmission Date: 20160304
  Serious: Yes (Death, Other)
  Sender: FDA-Public Use
  Company Number: KR-CELGENE-KOR-2015085731

PATIENT
  Age: 76 Year
  Sex: Male

DRUGS (5)
  1. PLATELETS [Concomitant]
     Active Substance: HUMAN PLATELET, ALLOGENIC
     Indication: TRANSFUSION
     Route: 041
  2. CIPROFLOXACIN. [Concomitant]
     Active Substance: CIPROFLOXACIN
     Indication: ANTIBIOTIC PROPHYLAXIS
     Route: 065
  3. AZACITIDINE INJECTABLE [Suspect]
     Active Substance: AZACITIDINE
     Indication: CHRONIC MYELOMONOCYTIC LEUKAEMIA
     Route: 065
  4. ERYTHROCYTES [Concomitant]
     Active Substance: HUMAN RED BLOOD CELL
     Indication: TRANSFUSION
     Route: 041
  5. ITRACONAZOLE. [Concomitant]
     Active Substance: ITRACONAZOLE
     Indication: ANTIBIOTIC PROPHYLAXIS
     Route: 065

REACTIONS (4)
  - Gastrointestinal haemorrhage [Fatal]
  - Full blood count decreased [Unknown]
  - Sinusitis fungal [Unknown]
  - Diarrhoea [Fatal]
